FAERS Safety Report 4989514-3 (Version None)
Quarter: 2006Q2

REPORT INFORMATION
  Report Type: 
  Country: None (occurrence: None)
  Receive Date: 20060502
  Receipt Date: 20051004
  Transmission Date: 20061013
  Serious: Yes (Hospitalization, Other)
  Sender: FDA-Public Use
  Company Number: US-MERCK-0510USA03590

PATIENT
  Age: 73 Year
  Sex: Female
  Weight: 81 kg

DRUGS (2)
  1. VIOXX [Suspect]
     Indication: ARTHRITIS
     Route: 048
     Dates: start: 20000501, end: 20001101
  2. ASPIRIN [Concomitant]
     Route: 065

REACTIONS (18)
  - ACUTE MYOCARDIAL INFARCTION [None]
  - ARTERIOSCLEROSIS [None]
  - ARTHROPATHY [None]
  - BLADDER DISORDER [None]
  - CARDIAC ARREST [None]
  - CHEST PAIN [None]
  - DEAFNESS BILATERAL [None]
  - DIZZINESS [None]
  - HEAD INJURY [None]
  - JOINT INJURY [None]
  - MYOCARDIAL INFARCTION [None]
  - PAIN [None]
  - ROAD TRAFFIC ACCIDENT [None]
  - ROTATOR CUFF SYNDROME [None]
  - SYNCOPE [None]
  - TINNITUS [None]
  - VENTRICULAR FIBRILLATION [None]
  - VENTRICULAR TACHYCARDIA [None]
